FAERS Safety Report 9690601 (Version 2)
Quarter: 2013Q4

REPORT INFORMATION
  Report Type: Spontaneous
  Country: MX (occurrence: MX)
  Receive Date: 20131115
  Receipt Date: 20131211
  Transmission Date: 20140711
  Serious: Yes (Hospitalization, Other)
  Sender: FDA-Public Use
  Company Number: MX-SA-2013SA117583

PATIENT
  Age: 13 Year
  Sex: Male

DRUGS (1)
  1. FABRAZYME [Suspect]
     Indication: FABRY^S DISEASE
     Route: 042
     Dates: start: 20130124

REACTIONS (3)
  - Leukopenia [Unknown]
  - Dengue fever [Recovered/Resolved]
  - Pyrexia [Recovered/Resolved]
